FAERS Safety Report 8834721 (Version 1)
Quarter: 2012Q4

REPORT INFORMATION
  Report Type: 
  Country: US (occurrence: US)
  Receive Date: 20121010
  Receipt Date: 20121010
  Transmission Date: 20130627
  Serious: Yes (Other)
  Sender: FDA-Public Use
  Company Number: US-ROCHE-1142743

PATIENT

DRUGS (3)
  1. BEVACIZUMAB [Suspect]
     Indication: NEOPLASM
     Route: 065
  2. EVEROLIMUS [Suspect]
     Indication: NEOPLASM
     Dosage: Escalating doses
     Route: 065
  3. PANITUMUMAB [Suspect]
     Indication: NEOPLASM
     Route: 065

REACTIONS (23)
  - Diarrhoea [Unknown]
  - Fatigue [Unknown]
  - Rash [Unknown]
  - Pruritus [Unknown]
  - Mucosal inflammation [Unknown]
  - Stomatitis [Unknown]
  - Enteritis [Unknown]
  - Vaginal infection [Unknown]
  - Hypertension [Unknown]
  - Proteinuria [Unknown]
  - Dysphonia [Unknown]
  - Dysphonia [Unknown]
  - Paronychia [Unknown]
  - Pancreatitis [Unknown]
  - Hyperglycaemia [Unknown]
  - Hypokalaemia [Unknown]
  - Hypomagnesaemia [Unknown]
  - Hypophosphataemia [Unknown]
  - Hyponatraemia [Unknown]
  - Hyperlipidaemia [Unknown]
  - Anaemia [Unknown]
  - Thrombocytopenia [Unknown]
  - Neutropenia [Unknown]
